FAERS Safety Report 6292675-X (Version None)
Quarter: 2009Q3

REPORT INFORMATION
  Report Type: 
  Country: None (occurrence: None)
  Receive Date: 20090731
  Receipt Date: 20090716
  Transmission Date: 20100115
  Serious: No
  Sender: FDA-Public Use
  Company Number: B0584596A

PATIENT
  Sex: Female

DRUGS (2)
  1. RELENZA [Suspect]
     Route: 055
     Dates: start: 20090714
  2. INHALERS [Concomitant]
     Indication: ASTHMA
     Route: 055

REACTIONS (3)
  - DRUG EXPOSURE DURING PREGNANCY [None]
  - PRODUCT QUALITY ISSUE [None]
  - UNDERDOSE [None]
